FAERS Safety Report 6212752-9 (Version None)
Quarter: 2009Q2

REPORT INFORMATION
  Report Type: 
  Country: None (occurrence: None)
  Receive Date: 20090603
  Receipt Date: 20090522
  Transmission Date: 20091009
  Serious: Yes (Hospitalization, Other)
  Sender: FDA-Public Use
  Company Number: US-BAXTER-2009BH009054

PATIENT
  Age: 66 Year
  Sex: Male

DRUGS (12)
  1. DIANEAL [Suspect]
     Indication: PERITONEAL DIALYSIS
     Route: 033
     Dates: start: 20081229
  2. NITROGLYCERIN [Concomitant]
     Indication: ANGINA PECTORIS
     Route: 065
  3. METOPROLOL SUCCINATE [Concomitant]
     Indication: BLOOD PRESSURE
     Route: 065
  4. EPOGEN [Concomitant]
     Indication: ANAEMIA
     Route: 065
  5. CLONIDINE [Concomitant]
     Indication: HYPERTENSION
     Route: 065
  6. ZEMPLAR [Concomitant]
     Indication: HYPOPARATHYROIDISM
     Route: 065
  7. HYDRALAZINE HCL [Concomitant]
     Indication: BLOOD PRESSURE
     Route: 065
  8. AMLODIPINE [Concomitant]
     Indication: BLOOD PRESSURE
     Route: 065
  9. LORAZEPAM [Concomitant]
     Indication: ANXIETY
     Route: 065
  10. ALLOPURINOL [Concomitant]
     Indication: GOUT
     Route: 065
  11. ATORVASTATIN CALCIUM [Concomitant]
     Indication: BLOOD CHOLESTEROL
     Route: 065
  12. NEPHROCAPS [Concomitant]
     Indication: VITAMIN SUPPLEMENTATION
     Route: 065

REACTIONS (5)
  - ANXIETY [None]
  - AZOTAEMIA [None]
  - BLOOD PRESSURE DECREASED [None]
  - CORONARY ARTERY DISEASE [None]
  - MYOCARDIAL INFARCTION [None]
